FAERS Safety Report 6635217-9 (Version None)
Quarter: 2010Q1

REPORT INFORMATION
  Report Type: 
  Country: None (occurrence: None)
  Receive Date: 20100315
  Receipt Date: 20100205
  Transmission Date: 20100710
  Serious: Yes (Death, Hospitalization, Other)
  Sender: FDA-Public Use
  Company Number: US-BAXTER-2008BH010992

PATIENT
  Age: 77 Year
  Sex: Male
  Weight: 72 kg

DRUGS (28)
  1. HEPARIN SODIUM INJECTION [Suspect]
     Indication: THROMBOSIS PROPHYLAXIS
     Route: 010
     Dates: start: 20070922, end: 20070922
  2. HEPARIN SODIUM INJECTION [Suspect]
     Route: 010
     Dates: start: 20070925, end: 20070925
  3. HEPARIN SODIUM INJECTION [Suspect]
     Route: 010
     Dates: start: 20070922, end: 20070922
  4. HEPARIN SODIUM INJECTION [Suspect]
     Route: 010
     Dates: start: 20070922, end: 20070922
  5. HEPARIN SODIUM 5,000 UNITS IN DEXTROSE 5% [Suspect]
     Indication: THROMBOSIS IN DEVICE
     Route: 042
     Dates: start: 20070924, end: 20070925
  6. HEPARIN SODIUM 5,000 UNITS IN DEXTROSE 5% [Suspect]
     Indication: PULMONARY EMBOLISM
     Route: 042
     Dates: start: 20070924, end: 20070925
  7. HEPARIN SODIUM 5,000 UNITS IN DEXTROSE 5% [Suspect]
     Route: 042
     Dates: start: 20070925, end: 20070926
  8. HEPARIN SODIUM 5,000 UNITS IN DEXTROSE 5% [Suspect]
     Route: 042
     Dates: start: 20070925, end: 20070926
  9. HEPARIN SODIUM 5,000 UNITS IN DEXTROSE 5% [Suspect]
     Route: 042
     Dates: start: 20070926, end: 20070927
  10. HEPARIN SODIUM 5,000 UNITS IN DEXTROSE 5% [Suspect]
     Route: 042
     Dates: start: 20070926, end: 20070927
  11. METOPROLOL [Concomitant]
     Indication: DRUG USE FOR UNKNOWN INDICATION
     Route: 065
  12. ASPIRIN [Concomitant]
     Indication: DRUG USE FOR UNKNOWN INDICATION
     Route: 065
     Dates: start: 20070516
  13. SIMVASTATIN [Concomitant]
     Indication: DRUG USE FOR UNKNOWN INDICATION
     Route: 065
  14. PHOSLO [Concomitant]
     Indication: DRUG USE FOR UNKNOWN INDICATION
     Route: 065
  15. FERROUS SULFATE TAB [Concomitant]
     Indication: DRUG USE FOR UNKNOWN INDICATION
     Route: 048
  16. LORAZEPAM [Concomitant]
     Indication: INSOMNIA
     Route: 048
  17. CEFUROXIME AXETIL [Concomitant]
     Indication: DRUG USE FOR UNKNOWN INDICATION
     Route: 048
  18. MEGACE [Concomitant]
     Indication: DECREASED APPETITE
     Route: 048
  19. RENALTABS [Concomitant]
     Indication: DRUG USE FOR UNKNOWN INDICATION
     Route: 048
  20. BENADRYL DECONGESTANT [Concomitant]
     Indication: NASAL CONGESTION
     Route: 048
  21. CHERATUSSIN AC [Concomitant]
     Indication: COUGH
     Route: 048
  22. AMOXICILLIN [Concomitant]
     Indication: DRUG USE FOR UNKNOWN INDICATION
     Route: 048
  23. FINASTERIDE [Concomitant]
     Indication: DRUG USE FOR UNKNOWN INDICATION
     Route: 048
  24. HYDRALAZINE HCL [Concomitant]
     Indication: HYPERTENSION
     Route: 048
     Dates: start: 20070516
  25. CYCLOBENZAPRINE [Concomitant]
     Indication: ABDOMINAL PAIN UPPER
     Route: 048
  26. ISORDIL [Concomitant]
     Indication: HYPERTENSION
     Route: 048
     Dates: start: 20070516
  27. RESTORIL [Concomitant]
     Indication: SLEEP DISORDER
     Route: 048
     Dates: start: 20070516
  28. HEPATITIS B VACCINE [Concomitant]
     Indication: DRUG USE FOR UNKNOWN INDICATION
     Route: 030

REACTIONS (22)
  - AGITATION [None]
  - BRADYCARDIA [None]
  - CARDIAC ARREST [None]
  - CEREBRAL ATROPHY [None]
  - COMA [None]
  - CONFUSIONAL STATE [None]
  - DYSARTHRIA [None]
  - DYSPNOEA [None]
  - ELECTROMECHANICAL DISSOCIATION [None]
  - FATIGUE [None]
  - GLOSSODYNIA [None]
  - HEPATITIS ACUTE [None]
  - HYPERKALAEMIA [None]
  - HYPOTENSION [None]
  - PNEUMONIA [None]
  - PULMONARY EMBOLISM [None]
  - RENAL FAILURE CHRONIC [None]
  - RESPIRATORY DISTRESS [None]
  - SWOLLEN TONGUE [None]
  - THROMBOSIS IN DEVICE [None]
  - URINARY TRACT INFECTION [None]
  - VOMITING [None]
